FAERS Safety Report 9299165 (Version 2)
Quarter: 2013Q3

REPORT INFORMATION
  Report Type: Spontaneous
  Country: US (occurrence: US)
  Receive Date: 20130520
  Receipt Date: 20130709
  Transmission Date: 20140515
  Serious: No
  Sender: FDA-Public Use
  Company Number: US-009507513-1305USA011457

PATIENT
  Age: 80 Year
  Sex: Female
  Weight: 56.69 kg

DRUGS (2)
  1. CLARITIN [Suspect]
     Indication: SINUSITIS
     Dosage: 10 MG, QD
     Route: 048
     Dates: start: 20130501, end: 20130503
  2. CLARITIN [Suspect]
     Indication: MEDICAL OBSERVATION

REACTIONS (5)
  - Dyspnoea [Not Recovered/Not Resolved]
  - Nervousness [Not Recovered/Not Resolved]
  - Asthenia [Recovered/Resolved]
  - Dizziness [Recovered/Resolved]
  - Palpitations [Recovered/Resolved]
